FAERS Safety Report 5504577-4 (Version None)
Quarter: 2007Q4

REPORT INFORMATION
  Report Type: 
  Country: None (occurrence: None)
  Receive Date: 20071101
  Receipt Date: 20071024
  Transmission Date: 20080405
  Serious: Yes (Other)
  Sender: FDA-Public Use
  Company Number: US-GILEAD-2007-0013483

PATIENT
  Sex: Female

DRUGS (3)
  1. ATRIPLA [Suspect]
     Indication: PROPHYLAXIS AGAINST HIV INFECTION
     Route: 065
     Dates: start: 20070828, end: 20070922
  2. VERAPAMIL [Concomitant]
     Indication: ARRHYTHMIA
     Route: 065
  3. VITAMIN CAP [Concomitant]
     Route: 065

REACTIONS (6)
  - ABDOMINAL DISTENSION [None]
  - ABDOMINAL PAIN UPPER [None]
  - BONE PAIN [None]
  - FATIGUE [None]
  - PAIN IN EXTREMITY [None]
  - SWOLLEN TONGUE [None]
